FAERS Safety Report 10235114 (Version 4)
Quarter: 2014Q3

REPORT INFORMATION
  Report Type: Spontaneous
  Country: US (occurrence: US)
  Receive Date: 20140613
  Receipt Date: 20140820
  Transmission Date: 20150326
  Serious: Yes (Life-Threatening)
  Sender: FDA-Public Use
  Company Number: US-009507513-1406USA002751

PATIENT
  Age: 16 Year
  Sex: Female
  Weight: 65.76 kg

DRUGS (1)
  1. NEXPLANON [Suspect]
     Active Substance: ETONOGESTREL
     Indication: CONTRACEPTION
     Dosage: 68 MG/ ONE ROD , INSERTED EVERY THREE YEARS
     Route: 059
     Dates: start: 20140513, end: 20140522

REACTIONS (1)
  - Implant site rash [Recovered/Resolved]

NARRATIVE: CASE EVENT DATE: 20140520
